FAERS Safety Report 6348930-8 (Version None)
Quarter: 2009Q3

REPORT INFORMATION
  Report Type: 
  Country: None (occurrence: None)
  Receive Date: 20090911
  Receipt Date: 20090908
  Transmission Date: 20100115
  Serious: No
  Sender: FDA-Public Use
  Company Number: US-B.I. PHARMACEUTICALS,INC./RIDGEFIELD-2009-BP-10661BP

PATIENT
  Sex: Male

DRUGS (5)
  1. MICARDIS HCT [Suspect]
     Indication: HYPERTENSION
     Route: 048
  2. MICARDIS HCT [Suspect]
     Route: 048
  3. ALLEGRA [Concomitant]
     Indication: HYPERSENSITIVITY
  4. ASPIRIN [Concomitant]
     Dosage: 81 MG
     Route: 048
  5. IBUPROFEN [Concomitant]
     Indication: ARTHRITIS
     Dosage: 1800 MG

REACTIONS (6)
  - DIABETES MELLITUS [None]
  - DISORIENTATION [None]
  - FATIGUE [None]
  - FEELING JITTERY [None]
  - NERVOUSNESS [None]
  - PSYCHOMOTOR HYPERACTIVITY [None]
